FAERS Safety Report 8902510 (Version 1)
Quarter: 2012Q4

REPORT INFORMATION
  Report Type: 
  Country: BR (occurrence: BR)
  Receive Date: 20121112
  Receipt Date: 20121112
  Transmission Date: 20130627
  Serious: Yes (Hospitalization)
  Sender: FDA-Public Use
  Company Number: BR-SANOFI-AVENTIS-2012SA068134

PATIENT
  Sex: Female
  Weight: 107 kg

DRUGS (8)
  1. LASIX [Suspect]
     Indication: DRUG USE FOR UNKNOWN INDICATION
     Dosage: End- Sep 2012
     Route: 048
     Dates: start: 20120911, end: 20120913
  2. ARAVA [Concomitant]
     Dosage: strength: 20 mg
  3. CLAVULIN [Concomitant]
     Dosage: strenght: 500 mg
  4. DEFLAZACORT [Concomitant]
     Dosage: strength: 30 mg
  5. ENALAPRIL [Concomitant]
     Dosage: strength: 20 mg
  6. HYDROXYZINE [Concomitant]
     Dosage: strength: 50 mg
  7. WARFARIN [Concomitant]
     Dosage: strength: 5 mg
  8. HYDROCHLOROTHIAZIDE [Concomitant]
     Dates: end: 20120911

REACTIONS (10)
  - Cellulitis [Recovering/Resolving]
  - Hyperaemia [Recovering/Resolving]
  - Oedema [Recovering/Resolving]
  - Toxic skin eruption [Recovering/Resolving]
  - Erythema [Recovering/Resolving]
  - Pruritus [Recovering/Resolving]
  - Pruritus [Recovering/Resolving]
  - Injury [Recovering/Resolving]
  - Excoriation [Recovering/Resolving]
  - Skin lesion [Recovering/Resolving]
